FAERS Safety Report 16874438 (Version 1)
Quarter: 2019Q4

REPORT INFORMATION
  Report Type: Spontaneous
  Country: CO (occurrence: CO)
  Receive Date: 20191001
  Receipt Date: 20191001
  Transmission Date: 20200122
  Serious: Yes (Other)
  Sender: FDA-Public Use
  Company Number: CO-009507513-1909COL013279

PATIENT
  Sex: Female

DRUGS (1)
  1. ERTAPENEM SODIUM [Suspect]
     Active Substance: ERTAPENEM SODIUM
     Dosage: 62 MILLIGRAM, UNKNOWN

REACTIONS (1)
  - Pallor [Recovering/Resolving]
